FAERS Safety Report 6233547-6 (Version None)
Quarter: 2009Q2

REPORT INFORMATION
  Report Type: 
  Country: None (occurrence: None)
  Receive Date: 20090615
  Receipt Date: 20090605
  Transmission Date: 20091009
  Serious: Yes (Hospitalization)
  Sender: FDA-Public Use
  Company Number: RENA-1000451

PATIENT
  Age: 61 Year
  Sex: Male

DRUGS (13)
  1. RENAGEL [Suspect]
     Indication: HYPERPHOSPHATAEMIA
     Dosage: 1.6 G, TID, ORAL
     Route: 048
     Dates: start: 20080915
  2. METOPROLOL TARTRATE [Suspect]
     Indication: DRUG USE FOR UNKNOWN INDICATION
     Dosage: 150 MG, BID ; 25 MG, BID
     Dates: start: 20090201
  3. LIPITOR [Concomitant]
  4. LISINOPRIL [Concomitant]
  5. STOOL SOFTENER (DOCUSATE SODIUM) [Concomitant]
  6. LANTUS [Concomitant]
  7. HUMULIN (INSULIN ISOPHANE, HUMAN BIOSYNTHETIC) [Concomitant]
  8. ASPIRIN [Concomitant]
  9. PLAVIX [Concomitant]
  10. ZEMPLAR [Concomitant]
  11. CLONIDINE [Concomitant]
  12. FUROSEMIDE [Concomitant]
  13. TEKTURN [Concomitant]

REACTIONS (4)
  - BLOOD POTASSIUM INCREASED [None]
  - HEART RATE DECREASED [None]
  - HYPERPHOSPHATAEMIA [None]
  - PNEUMONIA [None]
